FAERS Safety Report 25249791 (Version 5)
Quarter: 2025Q3

REPORT INFORMATION
  Report Type: Report from Study
  Country: CO (occurrence: CO)
  Receive Date: 20250429
  Receipt Date: 20250911
  Transmission Date: 20251020
  Serious: Yes (Hospitalization, Disabling, Other)
  Sender: AMGEN
  Company Number: CO-AMGEN-COLSL2025082902

PATIENT
  Age: 74 Year
  Sex: Male

DRUGS (1)
  1. VECTIBIX [Suspect]
     Active Substance: PANITUMUMAB
     Indication: Colorectal cancer metastatic
     Dosage: 400 MILLIGRAM, Q2WK
     Route: 040
     Dates: start: 20250408

REACTIONS (4)
  - Hip arthroplasty [Recovering/Resolving]
  - Mobility decreased [Not Recovered/Not Resolved]
  - Pain in extremity [Not Recovered/Not Resolved]
  - Rash [Not Recovered/Not Resolved]

NARRATIVE: CASE EVENT DATE: 20250401
